FAERS Safety Report 12999879 (Version 3)
Quarter: 2016Q4

REPORT INFORMATION
  Report Type: Spontaneous
  Country: US (occurrence: US)
  Receive Date: 20161205
  Receipt Date: 20161223
  Transmission Date: 20170207
  Serious: Yes (Death)
  Sender: FDA-Public Use
  Company Number: US-BAUSCH-BL-2016-030420

PATIENT
  Sex: Male

DRUGS (7)
  1. BUMETANIDE. [Concomitant]
     Active Substance: BUMETANIDE
     Indication: DIURETIC THERAPY
  2. TAURINE [Concomitant]
     Active Substance: TAURINE
     Indication: SUPPLEMENTATION THERAPY
  3. MILK THISTLE [Concomitant]
     Active Substance: MILK THISTLE
     Indication: LIVER DISORDER
  4. XIFAXAN [Suspect]
     Active Substance: RIFAXIMIN
     Indication: HEPATIC CIRRHOSIS
     Route: 048
     Dates: start: 201509
  5. SPIRONOLACTONE. [Concomitant]
     Active Substance: SPIRONOLACTONE
     Indication: DIURETIC THERAPY
  6. LACTULOSE. [Concomitant]
     Active Substance: LACTULOSE
     Indication: GASTROINTESTINAL MOTILITY DISORDER
  7. MAGNESIUM [Concomitant]
     Active Substance: MAGNESIUM
     Indication: MUSCLE SPASMS

REACTIONS (1)
  - Hepatic failure [Fatal]
